FAERS Safety Report 21765591 (Version 1)
Quarter: 2022Q4

REPORT INFORMATION
  Report Type: Report from Study
  Country: CA (occurrence: CA)
  Receive Date: 20221222
  Receipt Date: 20221222
  Transmission Date: 20230112
  Serious: Yes (Death)
  Sender: FDA-Public Use
  Company Number: CA-ABBVIE-4245614

PATIENT
  Age: 68 Year
  Sex: Male

DRUGS (1)
  1. VENCLEXTA [Suspect]
     Active Substance: VENETOCLAX
     Indication: Mantle cell lymphoma
     Dosage: FORM STRENGTH- 100 MG
     Route: 048
     Dates: start: 20220119

REACTIONS (1)
  - Death [Fatal]

NARRATIVE: CASE EVENT DATE: 20220321
